FAERS Safety Report 4554729-5 (Version None)
Quarter: 2005Q1

REPORT INFORMATION
  Report Type: 
  Country: None (occurrence: None)
  Receive Date: 20050118
  Receipt Date: 20031030
  Transmission Date: 20050727
  Serious: Yes (Other)
  Sender: FDA-Public Use
  Company Number: US-GLAXOSMITHKLINE-A0432762A

PATIENT
  Age: 41 Year
  Sex: Male

DRUGS (2)
  1. PAXIL [Suspect]
     Indication: SOCIAL PHOBIA
     Dosage: 10MG PER DAY
     Route: 048
     Dates: start: 20000101
  2. XANAX [Concomitant]

REACTIONS (13)
  - AGGRESSION [None]
  - CONVULSION [None]
  - DRUG DEPENDENCE [None]
  - DRUG WITHDRAWAL SYNDROME [None]
  - INFLUENZA [None]
  - INTENTIONAL SELF-INJURY [None]
  - MOTOR DYSFUNCTION [None]
  - NAUSEA [None]
  - NERVOUSNESS [None]
  - NIGHTMARE [None]
  - PYREXIA [None]
  - STRESS [None]
  - SUICIDAL IDEATION [None]
